FAERS Safety Report 24444094 (Version 2)
Quarter: 2024Q4

REPORT INFORMATION
  Report Type: Report from Study
  Country: US (occurrence: US)
  Receive Date: 20241016
  Receipt Date: 20241017
  Transmission Date: 20250114
  Serious: No
  Sender: ROCHE
  Company Number: US-ROCHE-2469867

PATIENT
  Sex: Female

DRUGS (4)
  1. RITUXAN [Suspect]
     Active Substance: RITUXIMAB
     Indication: Immune thrombocytopenia
     Dosage: EVERY OTHER MONTH
     Route: 041
  2. RITUXAN [Suspect]
     Active Substance: RITUXIMAB
     Indication: Neovascular age-related macular degeneration
  3. RITUXAN [Suspect]
     Active Substance: RITUXIMAB
     Indication: Choroidal neovascularisation
  4. RITUXAN [Suspect]
     Active Substance: RITUXIMAB
     Indication: Vitreous degeneration

REACTIONS (2)
  - Off label use [Unknown]
  - No adverse event [Unknown]
